FAERS Safety Report 4885911-5 (Version None)
Quarter: 2006Q1

REPORT INFORMATION
  Report Type: 
  Country: None (occurrence: None)
  Receive Date: 20060120
  Receipt Date: 20050510
  Transmission Date: 20060701
  Serious: Yes (Other)
  Sender: FDA-Public Use
  Company Number: US-ROCHE-404495

PATIENT
  Sex: Male
  Weight: 3.2 kg

DRUGS (2)
  1. ACCUTANE [Suspect]
     Dates: start: 19950929, end: 19960318
  2. ORAL CONTRACEPTIVE PILL [Concomitant]

REACTIONS (9)
  - CARDIAC MURMUR [None]
  - JAUNDICE [None]
  - JAUNDICE NEONATAL [None]
  - NEONATAL DISORDER [None]
  - PLACENTA PRAEVIA [None]
  - PREMATURE LABOUR [None]
  - PROLONGED LABOUR [None]
  - RESPIRATORY SYNCYTIAL VIRUS INFECTION [None]
  - UMBILICAL CORD AROUND NECK [None]
